FAERS Safety Report 21273069 (Version 1)
Quarter: 2022Q3

REPORT INFORMATION
  Report Type: Report from Study
  Country: US (occurrence: US)
  Receive Date: 20220831
  Receipt Date: 20220831
  Transmission Date: 20221027
  Serious: Yes (Other)
  Sender: FDA-Public Use
  Company Number: US-BRISTOL-MYERS SQUIBB COMPANY-2022-094167

PATIENT
  Age: 83 Year
  Sex: Female
  Weight: 62.142 kg

DRUGS (2)
  1. REVLIMID [Suspect]
     Active Substance: LENALIDOMIDE
     Indication: Plasma cell myeloma
     Route: 048
  2. LIDOCAINE [Suspect]
     Active Substance: LIDOCAINE
     Indication: Micrographic skin surgery
     Route: 065

REACTIONS (3)
  - Lip neoplasm malignant stage unspecified [Unknown]
  - Feeling abnormal [Unknown]
  - Off label use [Unknown]
